FAERS Safety Report 5127017-6 (Version None)
Quarter: 2006Q4

REPORT INFORMATION
  Report Type: 
  Country: None (occurrence: None)
  Receive Date: 20061013
  Receipt Date: 20061003
  Transmission Date: 20070319
  Serious: Yes (Other)
  Sender: FDA-Public Use
  Company Number: FR-GLAXOSMITHKLINE-B0441199A

PATIENT
  Age: 71 Year
  Sex: Female

DRUGS (8)
  1. ARIXTRA [Suspect]
     Indication: THROMBOSIS PROPHYLAXIS
     Route: 058
     Dates: start: 20060901
  2. ZOFRAN [Concomitant]
  3. XANAX [Concomitant]
  4. NEURONTIN [Concomitant]
  5. MOVICOL [Concomitant]
  6. ARIMIDEX [Concomitant]
     Indication: BREAST CANCER METASTATIC
  7. CORTICOIDS [Concomitant]
  8. SPASFON [Concomitant]

REACTIONS (3)
  - ANAEMIA [None]
  - LEUKOPENIA [None]
  - THROMBOCYTOPENIA [None]
